FAERS Safety Report 9282967 (Version 2)
Quarter: 2013Q2

REPORT INFORMATION
  Report Type: Spontaneous
  Country: CH (occurrence: CH)
  Receive Date: 20130510
  Receipt Date: 20130611
  Transmission Date: 20140414
  Serious: Yes (Hospitalization)
  Sender: FDA-Public Use
  Company Number: PHHY2013CH044532

PATIENT
  Age: 47 Year
  Sex: Male

DRUGS (11)
  1. RIMACTAN SANDOZ [Suspect]
     Dosage: 1 DF, BID
     Route: 048
     Dates: start: 20121114
  2. MARCOUMAR [Interacting]
     Dosage: 1 DF, DAILY
     Route: 048
  3. CIPROXIN//CIPROFLOXACIN HYDROCHLORIDE [Concomitant]
     Dosage: 2 DF, DAILY
     Route: 048
  4. VIBRAMYCIN//DOXYCYCLINE MONOHYDRATE [Concomitant]
     Dosage: 2 DF, DAILY
     Route: 048
  5. BILOL [Concomitant]
     Dosage: 3 DF, DAILY
     Route: 048
  6. BILOL [Concomitant]
     Dosage: 2 DF, DAILY
     Route: 048
  7. LAMICTAL [Concomitant]
     Dosage: 4 DF, DAILY
     Route: 048
  8. TRITTICO [Concomitant]
     Dosage: 4 DF, DAILY
     Route: 048
  9. TRITTICO [Concomitant]
     Dosage: 2 DF, DAILY
     Route: 048
     Dates: start: 20130205
  10. CLEXANE [Concomitant]
     Dosage: 80 MG, DAILY
     Route: 058
     Dates: start: 20130128
  11. MAXALT//RIZATRIPTAN [Concomitant]

REACTIONS (4)
  - Cerebral ischaemia [Recovered/Resolved]
  - Vertigo [Recovered/Resolved]
  - Prothrombin time shortened [Recovered/Resolved]
  - Drug interaction [Recovered/Resolved]
